FAERS Safety Report 15334594 (Version 1)
Quarter: 2018Q3

REPORT INFORMATION
  Report Type: Spontaneous
  Country: US (occurrence: US)
  Receive Date: 20180826
  Receipt Date: 20180826
  Transmission Date: 20181010
  Serious: Yes (Hospitalization, Disabling)
  Sender: FDA-Public Use
  Company Number: None

PATIENT
  Age: 22 Year
  Sex: Female
  Weight: 112.94 kg

DRUGS (8)
  1. LEXAPRO [Suspect]
     Active Substance: ESCITALOPRAM OXALATE
  2. ABILIFY [Suspect]
     Active Substance: ARIPIPRAZOLE
  3. LATUDA [Suspect]
     Active Substance: LURASIDONE HYDROCHLORIDE
     Indication: PSYCHOTIC DISORDER
     Dosage: ?          QUANTITY:2 TABLET(S);?
     Route: 048
     Dates: start: 20180821
  4. MULTI?VITAMIN [Concomitant]
     Active Substance: .ALPHA.-TOCOPHEROL ACETATE, DL-\ASCORBIC ACID\CYANOCOBALAMIN\FLUORIDE ION\FOLIC ACID\NIACIN\PYRIDOXINE\RIBOFLAVIN\THIAMINE\VITAMIN A\VITAMIN D
  5. VITAMIN D [Concomitant]
     Active Substance: CHOLECALCIFEROL
  6. FISH OIL [Concomitant]
     Active Substance: FISH OIL
  7. RISPERIDONE. [Suspect]
     Active Substance: RISPERIDONE
  8. ZYPREXA [Concomitant]
     Active Substance: OLANZAPINE

REACTIONS (14)
  - Galactorrhoea [None]
  - Somnolence [None]
  - Chromaturia [None]
  - Nausea [None]
  - Anhedonia [None]
  - Burning sensation [None]
  - Frustration tolerance decreased [None]
  - Salt craving [None]
  - Heart rate decreased [None]
  - Abnormal behaviour [None]
  - Flatulence [None]
  - Weight increased [None]
  - Depression [None]
  - Dyscalculia [None]

NARRATIVE: CASE EVENT DATE: 20180826
